FAERS Safety Report 7156319-7 (Version None)
Quarter: 2010Q4

REPORT INFORMATION
  Report Type: 
  Country: None (occurrence: None)
  Receive Date: 20101214
  Receipt Date: 20101209
  Transmission Date: 20110411
  Serious: Yes (Life-Threatening)
  Sender: FDA-Public Use
  Company Number: US-BAXTER-2010BH028831

PATIENT
  Sex: Female

DRUGS (2)
  1. IMMUNOGLOBULIN HUMAN NORMAL [Suspect]
     Indication: IMMUNODEFICIENCY COMMON VARIABLE
     Route: 042
     Dates: start: 20100714, end: 20100714
  2. IMMUNOGLOBULIN HUMAN NORMAL [Suspect]
     Indication: PRIMARY IMMUNODEFICIENCY SYNDROME
     Route: 042
     Dates: start: 20100714, end: 20100714

REACTIONS (1)
  - ANAPHYLACTIC REACTION [None]
